FAERS Safety Report 9523305 (Version 8)
Quarter: 2021Q4

REPORT INFORMATION
  Report Type: Other
  Country: CA (occurrence: CA)
  Receive Date: 20130913
  Receipt Date: 20211016
  Transmission Date: 20220303
  Serious: Yes (Other)
  Sender: FDA-Public Use
  Company Number: CA-ROCHE-1265945

PATIENT
  Age: 60 Year
  Sex: Female
  Weight: 74.8 kg

DRUGS (14)
  1. ACTEMRA [Suspect]
     Active Substance: TOCILIZUMAB
     Indication: Rheumatoid arthritis
     Route: 042
     Dates: start: 20120816
  2. ACTEMRA [Suspect]
     Active Substance: TOCILIZUMAB
     Route: 042
     Dates: start: 20121031, end: 20121031
  3. RITUXAN [Suspect]
     Active Substance: RITUXIMAB
     Indication: Rheumatoid arthritis
     Dosage: LAST DOSE OF RITUXIMAB WAS ON 25/JAN/2013.
     Route: 042
     Dates: start: 20130111
  4. RITUXAN [Suspect]
     Active Substance: RITUXIMAB
     Dosage: THERAPY RECEIVED DATE: 05/JUL/2017
     Route: 042
     Dates: start: 20131002
  5. MELOXICAM [Suspect]
     Active Substance: MELOXICAM
     Indication: Product used for unknown indication
     Route: 065
  6. LEVOTHYROXINE [Concomitant]
     Active Substance: LEVOTHYROXINE
  7. METHOTREXATE [Concomitant]
     Active Substance: METHOTREXATE
  8. PREVACID [Concomitant]
     Active Substance: LANSOPRAZOLE
  9. FOLIC ACID [Concomitant]
     Active Substance: FOLIC ACID
  10. IBUPROFEN [Concomitant]
     Active Substance: IBUPROFEN
  11. RESTASIS [Concomitant]
     Active Substance: CYCLOSPORINE
  12. PREDNISONE [Concomitant]
     Active Substance: PREDNISONE
  13. PREDNISONE [Concomitant]
     Active Substance: PREDNISONE
  14. MORPHINE SULFATE [Concomitant]
     Active Substance: MORPHINE SULFATE

REACTIONS (17)
  - Nerve compression [Not Recovered/Not Resolved]
  - Carpal tunnel syndrome [Not Recovered/Not Resolved]
  - Peripheral nerve injury [Not Recovered/Not Resolved]
  - Urinary tract infection [Unknown]
  - Rheumatoid arthritis [Not Recovered/Not Resolved]
  - Injection site swelling [Recovered/Resolved]
  - Injection site bruising [Recovered/Resolved]
  - Ear congestion [Unknown]
  - Ear discomfort [Recovered/Resolved]
  - Oropharyngeal pain [Recovered/Resolved]
  - Abdominal discomfort [Unknown]
  - Gastric disorder [Unknown]
  - Paraesthesia [Recovered/Resolved]
  - Upper respiratory tract congestion [Recovered/Resolved]
  - Throat irritation [Recovered/Resolved]
  - Ear pruritus [Recovered/Resolved]
  - Dysphonia [Recovered/Resolved]

NARRATIVE: CASE EVENT DATE: 20121201
